FAERS Safety Report 22270613 (Version 4)
Quarter: 2023Q2

REPORT INFORMATION
  Report Type: Spontaneous
  Country: US (occurrence: None)
  Receive Date: 20230501
  Receipt Date: 20230612
  Transmission Date: 20230722
  Serious: Yes (Hospitalization)
  Sender: FDA-Public Use
  Company Number: US-ROCHE-3341539

PATIENT
  Age: 27 Year
  Sex: Male
  Weight: 86.5 kg

DRUGS (3)
  1. HEMLIBRA [Suspect]
     Active Substance: EMICIZUMAB-KXWH
     Indication: Factor VIII deficiency
     Dosage: CURRENT DOSE: 150MG/1ML, 259.5MG/1.73 ML EVERY 2 WEEKS;?HEMLIBRA WAS HELD INPATIENT ON 20/APR/2023 T
     Route: 058
     Dates: start: 20220303
  2. PENICILLIN G POTASSIUM [Concomitant]
     Active Substance: PENICILLIN G POTASSIUM
     Dosage: 4 MILLION U    FOR 11 DAYS
     Route: 042
  3. ANTIHEMOPHILIC FACTOR HUMAN [Concomitant]
     Active Substance: ANTIHEMOPHILIC FACTOR HUMAN
     Dosage: FOR SPINAL PUNCTURE

REACTIONS (2)
  - Cerebrovascular accident [Recovered/Resolved]
  - Haemorrhage [Recovered/Resolved]

NARRATIVE: CASE EVENT DATE: 20230320
